FAERS Safety Report 5353521-1 (Version None)
Quarter: 2007Q2

REPORT INFORMATION
  Report Type: 
  Country: None (occurrence: None)
  Receive Date: 20070608
  Receipt Date: 20070608
  Transmission Date: 20071010
  Serious: No
  Sender: FDA-Public Use
  Company Number: None

PATIENT
  Sex: Male
  Weight: 72.5755 kg

DRUGS (1)
  1. ANDRODERM TESTOSTERONE 5MG/DAY WATSON PHARMA [Suspect]
     Indication: BLOOD TESTOSTERONE DECREASED
     Dosage: TWO 5MG PATCHES DAILY TRANSDERMAL
     Route: 062
     Dates: start: 20070316, end: 20070501

REACTIONS (3)
  - BLOOD TESTOSTERONE DECREASED [None]
  - DRUG INEFFECTIVE [None]
  - PHARMACEUTICAL PRODUCT COMPLAINT [None]
